FAERS Safety Report 4556650-5 (Version None)
Quarter: 2004Q4

REPORT INFORMATION
  Report Type: 
  Country: None (occurrence: None)
  Receive Date: 20041227
  Receipt Date: 20040828
  Transmission Date: 20050328
  Serious: Yes (Other)
  Sender: FDA-Public Use
  Company Number: US-JNJFOC-20040809905

PATIENT
  Age: 44 Year
  Sex: Female

DRUGS (4)
  1. REOPRO [Suspect]
     Indication: STENT PLACEMENT
     Dosage: BOLUS AND INFUSION
     Dates: start: 20040827, end: 20040827
  2. HEPARIN [Concomitant]
  3. ASPIRIN [Concomitant]
  4. PLAVIX [Concomitant]

REACTIONS (2)
  - BACK PAIN [None]
  - THROMBOCYTOPENIA [None]
